FAERS Safety Report 22280882 (Version 2)
Quarter: 2023Q4

REPORT INFORMATION
  Report Type: Report from Study
  Country: US (occurrence: US)
  Receive Date: 20230503
  Receipt Date: 20231229
  Transmission Date: 20240109
  Serious: Yes (Hospitalization, Other)
  Sender: FDA-Public Use
  Company Number: US-ABBVIE-4749635

PATIENT
  Age: 70 Year
  Sex: Female
  Weight: 45 kg

DRUGS (17)
  1. HUMIRA [Suspect]
     Active Substance: ADALIMUMAB
     Indication: Rheumatoid arthritis
     Dosage: - FORM STRENGTH: 40 MG
     Route: 058
     Dates: start: 2008, end: 20220813
  2. HUMIRA [Suspect]
     Active Substance: ADALIMUMAB
     Dosage: FORM STRENGTH: 40 MG
     Route: 058
     Dates: start: 20221001
  3. ISOSORBIDE MONONITRATE [Concomitant]
     Active Substance: ISOSORBIDE MONONITRATE
     Indication: Product used for unknown indication
     Dosage: ISOSORBIDE MONO ER
     Dates: start: 202209
  4. HYDROXYCHLOROQUINE [Concomitant]
     Active Substance: HYDROXYCHLOROQUINE
     Indication: Rheumatoid arthritis
  5. TRELEGY ELLIPTA [Suspect]
     Active Substance: FLUTICASONE FUROATE\UMECLIDINIUM BROMIDE\VILANTEROL TRIFENATATE
     Indication: Chronic obstructive pulmonary disease
     Dosage: 200/62.5/25 MCG?IN THE MORNING,
     Route: 065
     Dates: end: 20231217
  6. TRAZODONE [Concomitant]
     Active Substance: TRAZODONE HYDROCHLORIDE
     Indication: Essential tremor
     Dosage: TIME INTERVAL: 0.33333333 DAYS: 1 TABLET
  7. BUSPIRONE [Concomitant]
     Active Substance: BUSPIRONE HYDROCHLORIDE
     Indication: Smoking cessation therapy
     Dosage: FORM STRENGTH: 300 MG
  8. BUSPAR [Concomitant]
     Active Substance: BUSPIRONE HYDROCHLORIDE
     Indication: Smoking cessation therapy
     Dosage: TIME INTERVAL: 0.33333333 DAYS: 3 TABLET?FORM STRENGTH: 5 MG
  9. SEROQUEL [Suspect]
     Active Substance: QUETIAPINE FUMARATE
     Indication: Bipolar disorder
     Dosage: 25 MILLIGRAM
     Route: 048
     Dates: start: 202209
  10. SEROQUEL [Suspect]
     Active Substance: QUETIAPINE FUMARATE
     Indication: Bipolar disorder
     Dosage: 400 MILLIGRAM FIRST ADMIN DATE 1990
     Route: 048
     Dates: end: 202209
  11. SEROQUEL [Suspect]
     Active Substance: QUETIAPINE FUMARATE
     Indication: Bipolar disorder
     Dosage: 50 MILLIGRAM
     Route: 048
  12. SEROQUEL [Suspect]
     Active Substance: QUETIAPINE FUMARATE
     Indication: Bipolar disorder
     Dosage: 100 MILLIGRAM
     Route: 048
  13. ASPIRIN [Concomitant]
     Active Substance: ASPIRIN
     Indication: Product used for unknown indication
  14. ASPIRIN [Concomitant]
     Active Substance: ASPIRIN
     Indication: Product used for unknown indication
     Dates: start: 202209, end: 202209
  15. ESCITALOPRAM [Concomitant]
     Active Substance: ESCITALOPRAM OXALATE
     Indication: Bipolar disorder
  16. DIAZEPAM [Concomitant]
     Active Substance: DIAZEPAM
     Indication: Bipolar disorder
  17. FOLIC ACID [Concomitant]
     Active Substance: FOLIC ACID
     Indication: Rheumatoid arthritis

REACTIONS (25)
  - Hiatus hernia [Recovered/Resolved]
  - Weight decreased [Recovering/Resolving]
  - Drug hypersensitivity [Not Recovered/Not Resolved]
  - Amnesia [Not Recovered/Not Resolved]
  - Asthenia [Not Recovered/Not Resolved]
  - Arthralgia [Not Recovered/Not Resolved]
  - Somnolence [Recovered/Resolved]
  - Rash macular [Not Recovered/Not Resolved]
  - Arthritis [Not Recovered/Not Resolved]
  - Hair colour changes [Not Recovered/Not Resolved]
  - Malnutrition [Unknown]
  - Pain [Recovered/Resolved]
  - Thyroid hormones decreased [Not Recovered/Not Resolved]
  - Alopecia [Not Recovered/Not Resolved]
  - Depression [Recovering/Resolving]
  - Skin disorder [Not Recovered/Not Resolved]
  - Procedural complication [Recovered/Resolved with Sequelae]
  - Back pain [Not Recovered/Not Resolved]
  - Cataract [Not Recovered/Not Resolved]
  - Dyspnoea [Not Recovered/Not Resolved]
  - Night blindness [Not Recovered/Not Resolved]
  - Confusional state [Not Recovered/Not Resolved]
  - Epistaxis [Recovered/Resolved]
  - Pain in extremity [Not Recovered/Not Resolved]
  - Skin atrophy [Unknown]

NARRATIVE: CASE EVENT DATE: 20220621
